FAERS Safety Report 6364464-9 (Version None)
Quarter: 2009Q3

REPORT INFORMATION
  Report Type: 
  Country: None (occurrence: None)
  Receive Date: 20090919
  Receipt Date: 20090722
  Transmission Date: 20100115
  Serious: No
  Sender: FDA-Public Use
  Company Number: US-ABBOTT-09P-163-0587581-00

PATIENT
  Sex: Female
  Weight: 136.2 kg

DRUGS (6)
  1. HUMIRA [Suspect]
     Indication: PSORIATIC ARTHROPATHY
     Dates: start: 20090401, end: 20090601
  2. HUMIRA [Suspect]
     Indication: RHEUMATOID ARTHRITIS
  3. FELDENE [Concomitant]
     Indication: RHEUMATOID ARTHRITIS
  4. ALBUTEROL [Concomitant]
     Indication: ASTHMA
  5. ADVAIR HFA [Concomitant]
     Indication: ASTHMA
  6. VERAMIST [Concomitant]
     Indication: ASTHMA

REACTIONS (2)
  - DRUG DOSE OMISSION [None]
  - MOBILITY DECREASED [None]
